FAERS Safety Report 7005295-6 (Version None)
Quarter: 2010Q3

REPORT INFORMATION
  Report Type: 
  Country: None (occurrence: None)
  Receive Date: 20100921
  Receipt Date: 20100908
  Transmission Date: 20110219
  Serious: Yes (Other)
  Sender: FDA-Public Use
  Company Number: US-ELI_LILLY_AND_COMPANY-US201009002936

PATIENT
  Age: 64 Year
  Sex: Male

DRUGS (3)
  1. EFFIENT [Suspect]
     Indication: ACUTE CORONARY SYNDROME
     Dosage: 60 MG, UNKNOWN
  2. EFFIENT [Suspect]
     Dosage: 10 MG, UNKNOWN
  3. ASPIRIN [Concomitant]
     Dosage: 81 MG, DAILY (1/D)

REACTIONS (2)
  - RECTAL CANCER [None]
  - RECTAL HAEMORRHAGE [None]
